FAERS Safety Report 23896284 (Version 2)
Quarter: 2024Q3

REPORT INFORMATION
  Report Type: Spontaneous
  Country: SG (occurrence: SG)
  Receive Date: 20240524
  Receipt Date: 20240709
  Transmission Date: 20241017
  Serious: Yes (Hospitalization)
  Sender: ROCHE
  Company Number: SG-ROCHE-3567874

PATIENT
  Age: 71 Year
  Sex: Female

DRUGS (1)
  1. PERJETA [Suspect]
     Active Substance: PERTUZUMAB
     Indication: Breast cancer
     Route: 065

REACTIONS (3)
  - Myocardial infarction [Unknown]
  - Alopecia [Unknown]
  - Uterine haemorrhage [Unknown]
